FAERS Safety Report 23521741 (Version 1)
Quarter: 2024Q1

REPORT INFORMATION
  Report Type: Spontaneous
  Country: None (occurrence: None)
  Receive Date: 20240214
  Receipt Date: 20240214
  Transmission Date: 20240409
  Serious: No
  Sender: FDA-Public Use
  Company Number: CA-ROCHE-3410147

PATIENT

DRUGS (22)
  1. OCRELIZUMAB [Suspect]
     Active Substance: OCRELIZUMAB
  2. COMIRNATY (TOZINAMERAN) [Suspect]
     Active Substance: TOZINAMERAN
  3. ELASOMERAN [Suspect]
     Active Substance: ELASOMERAN
  4. SPIKEVAX (ELASOMERAN) [Suspect]
     Active Substance: ELASOMERAN
  5. AMITRIPTYLINE HYDROCHLORIDE [Concomitant]
     Active Substance: AMITRIPTYLINE HYDROCHLORIDE
  6. MEDROXYPROGESTERONE ACETATE [Concomitant]
     Active Substance: MEDROXYPROGESTERONE ACETATE
  7. BENADRYL [Concomitant]
     Active Substance: DIPHENHYDRAMINE HYDROCHLORIDE
  8. CLONAZEPAM [Concomitant]
     Active Substance: CLONAZEPAM
  9. COLLAGEN [Concomitant]
     Active Substance: COLLAGEN
  10. HERBALS\TURMERIC [Concomitant]
     Active Substance: HERBALS\TURMERIC
  11. ESTRADIOL [Concomitant]
     Active Substance: ESTRADIOL
  12. LOTEMAX [Concomitant]
     Active Substance: LOTEPREDNOL ETABONATE
  13. MAGNESIUM [Concomitant]
     Active Substance: MAGNESIUM
  14. MEDROXYPROGESTERONE [Concomitant]
     Active Substance: MEDROXYPROGESTERONE
  15. METHYLPHENIDATE [Concomitant]
     Active Substance: METHYLPHENIDATE
  16. METHYLPREDNISOLONE [Concomitant]
     Active Substance: METHYLPREDNISOLONE
  17. SODIUM CHLORIDE [Concomitant]
     Active Substance: SODIUM CHLORIDE
  18. PREDNISONE [Concomitant]
     Active Substance: PREDNISONE
  19. SOLIFENACIN [Concomitant]
     Active Substance: SOLIFENACIN
  20. TYLENOL [Concomitant]
     Active Substance: ACETAMINOPHEN
  21. VITAMIN D3 [Concomitant]
     Active Substance: CHOLECALCIFEROL
  22. ZOPICLONE [Concomitant]
     Active Substance: ZOPICLONE

REACTIONS (48)
  - Alopecia [None]
  - Anxiety [None]
  - Asthenia [None]
  - Asthenopia [None]
  - Attention deficit hyperactivity disorder [None]
  - Burning sensation [None]
  - Cataract [None]
  - Chest pain [None]
  - Crying [None]
  - Dry eye [None]
  - Dyspnoea [None]
  - Ear pruritus [None]
  - Emotional distress [None]
  - Fatigue [None]
  - Feeling abnormal [None]
  - Gait disturbance [None]
  - Hypertonic bladder [None]
  - Hypoaesthesia [None]
  - Infusion related reaction [None]
  - Insomnia [None]
  - Lacrimation increased [None]
  - Lymphocyte count decreased [None]
  - Memory impairment [None]
  - Menopausal symptoms [None]
  - Multiple sclerosis relapse [None]
  - Muscle spasms [None]
  - Nephrolithiasis [None]
  - Nightmare [None]
  - Nocturia [None]
  - Pain [None]
  - Pain in extremity [None]
  - Pharyngeal paraesthesia [None]
  - Pollakiuria [None]
  - Pruritus [None]
  - Restless legs syndrome [None]
  - Skin laceration [None]
  - Sleep disorder [None]
  - Spinal pain [None]
  - Splinter [None]
  - Stress [None]
  - Throat irritation [None]
  - Throat tightness [None]
  - Visual impairment [None]
  - White blood cell count decreased [None]
  - Interchange of vaccine products [None]
  - Skin burning sensation [None]
  - Cerebral disorder [None]
  - Immunosuppression [None]
